FAERS Safety Report 7571935-6 (Version None)
Quarter: 2011Q2

REPORT INFORMATION
  Report Type: 
  Country: None (occurrence: None)
  Receive Date: 20110624
  Receipt Date: 20110203
  Transmission Date: 20111010
  Serious: No
  Sender: FDA-Public Use
  Company Number: A0911679A

PATIENT
  Age: 50 Year
  Sex: Female

DRUGS (1)
  1. VERAMYST [Suspect]
     Dosage: 2SPR PER DAY
     Route: 045
     Dates: start: 20101101, end: 20101101

REACTIONS (1)
  - EPISTAXIS [None]
